FAERS Safety Report 14685223 (Version 1)
Quarter: 2018Q1

REPORT INFORMATION
  Report Type: Spontaneous
  Country: IT (occurrence: IT)
  Receive Date: 20180327
  Receipt Date: 20180327
  Transmission Date: 20180509
  Serious: Yes (Hospitalization, Other)
  Sender: FDA-Public Use
  Company Number: IT-EPIC PHARMA LLC-2018EPC00164

PATIENT
  Age: 28 Year
  Sex: Female

DRUGS (1)
  1. METHADONE HYDROCHLORIDE. [Suspect]
     Active Substance: METHADONE HYDROCHLORIDE
     Dosage: 80 MG, 1X/DAY
     Route: 065

REACTIONS (4)
  - Foetal death [Not Recovered/Not Resolved]
  - Foetal exposure during pregnancy [Recovered/Resolved]
  - Umbilical cord thrombosis [Recovered/Resolved]
  - Placental infarction [Recovered/Resolved]
